FAERS Safety Report 6015273-1 (Version None)
Quarter: 2008Q4

REPORT INFORMATION
  Report Type: 
  Country: None (occurrence: None)
  Receive Date: 20081218
  Receipt Date: 20081205
  Transmission Date: 20090506
  Serious: Yes (Hospitalization)
  Sender: FDA-Public Use
  Company Number: 232654K08USA

PATIENT
  Age: 50 Year
  Sex: Male
  Weight: 72 kg

DRUGS (1)
  1. REBIF [Suspect]
     Indication: MULTIPLE SCLEROSIS
     Dosage: 44 MCG, 3 IN 1 WEEKS, SUBCUTANEOUS
     Route: 058
     Dates: start: 20050902

REACTIONS (6)
  - INJECTION SITE INFECTION [None]
  - INTERVERTEBRAL DISC DISORDER [None]
  - POST PROCEDURAL INFECTION [None]
  - SCAB [None]
  - STAPHYLOCOCCAL OSTEOMYELITIS [None]
  - WEIGHT DECREASED [None]
